FAERS Safety Report 24583920 (Version 1)
Quarter: 2024Q4

REPORT INFORMATION
  Report Type: Spontaneous
  Country: DE (occurrence: DE)
  Receive Date: 20241106
  Receipt Date: 20241106
  Transmission Date: 20250114
  Serious: Yes (Hospitalization, Other)
  Sender: CHEPLAPHARM
  Company Number: DE-CHEPLA-2024013979

PATIENT
  Age: 59 Year
  Sex: Female

DRUGS (1)
  1. OLANZAPINE PAMOATE [Suspect]
     Active Substance: OLANZAPINE PAMOATE
     Indication: Product used for unknown indication
     Dosage: SHORTLY AFTER 9 A.M.

REACTIONS (5)
  - Dizziness [Recovering/Resolving]
  - Swelling of eyelid [Not Recovered/Not Resolved]
  - Dysarthria [Recovering/Resolving]
  - Pain in extremity [Recovering/Resolving]
  - Sedation complication [Unknown]
